FAERS Safety Report 15889184 (Version 1)
Quarter: 2019Q1

REPORT INFORMATION
  Report Type: Spontaneous
  Country: US (occurrence: US)
  Receive Date: 20190107
  Receipt Date: 20190107
  Transmission Date: 20190417
  Serious: No
  Sender: FDA-Public Use
  Company Number: None

PATIENT
  Age: 50 Year
  Sex: Female

DRUGS (1)
  1. IBRANCE [Suspect]
     Active Substance: PALBOCICLIB
     Indication: HEPATIC CANCER
     Route: 048
     Dates: start: 20181019

REACTIONS (2)
  - Oral pain [None]
  - Hypoaesthesia [None]

NARRATIVE: CASE EVENT DATE: 20181019
